FAERS Safety Report 10072651 (Version 2)
Quarter: 2014Q3

REPORT INFORMATION
  Report Type: Spontaneous
  Country: PL (occurrence: PL)
  Receive Date: 20140411
  Receipt Date: 20140811
  Transmission Date: 20150326
  Serious: Yes (Other)
  Sender: FDA-Public Use
  Company Number: PL-JNJFOC-20140403461

PATIENT
  Age: 26 Year
  Sex: Male

DRUGS (1)
  1. PREZISTA [Suspect]
     Active Substance: DARUNAVIR ETHANOLATE
     Indication: HIV INFECTION
     Route: 048
     Dates: start: 2012

REACTIONS (3)
  - Dehydration [Recovered/Resolved]
  - Hyperoxaluria [Recovered/Resolved]
  - Renal colic [Recovered/Resolved]
